FAERS Safety Report 4457423-4 (Version None)
Quarter: 2004Q3

REPORT INFORMATION
  Report Type: 
  Country: None (occurrence: None)
  Receive Date: 20040831
  Receipt Date: 20030626
  Transmission Date: 20050211
  Serious: Yes (Hospitalization)
  Sender: FDA-Public Use
  Company Number: 341183

PATIENT
  Age: 35 Year
  Sex: Female

DRUGS (4)
  1. CELLCEPT [Suspect]
     Indication: PROPHYLAXIS AGAINST TRANSPLANT REJECTION
     Dosage: 1.5 GRAM 2 PER DAY ORAL
     Route: 048
     Dates: start: 20030515, end: 20030620
  2. CELLCEPT [Suspect]
     Indication: RENAL TRANSPLANT
     Dosage: 1.5 GRAM 2 PER DAY ORAL
     Route: 048
     Dates: start: 20030515, end: 20030620
  3. PROGRAF [Suspect]
     Indication: PROPHYLAXIS AGAINST TRANSPLANT REJECTION
     Dosage: 7 MG DAILY ORAL
     Route: 048
     Dates: start: 20030515, end: 20030620
  4. PROGRAF [Suspect]
     Indication: RENAL TRANSPLANT
     Dosage: 7 MG DAILY ORAL
     Route: 048
     Dates: start: 20030515, end: 20030620

REACTIONS (2)
  - DISEASE RECURRENCE [None]
  - PANCREATITIS [None]
